FAERS Safety Report 21314844 (Version 5)
Quarter: 2024Q1

REPORT INFORMATION
  Report Type: Spontaneous
  Country: US (occurrence: US)
  Receive Date: 20220909
  Receipt Date: 20240313
  Transmission Date: 20240409
  Serious: No
  Sender: FDA-Public Use
  Company Number: US-PFIZER INC-PV202200023329

PATIENT
  Age: 70 Year
  Sex: Female

DRUGS (3)
  1. CIBINQO [Suspect]
     Active Substance: ABROCITINIB
     Indication: Granuloma annulare
     Dosage: 100 MG, 1X/DAY
     Route: 048
  2. CIBINQO [Suspect]
     Active Substance: ABROCITINIB
     Indication: Dermatitis atopic
     Dosage: 50 MG (100 MG/CONTINUE CUTTING THEM IN HALF)
  3. CIBINQO [Suspect]
     Active Substance: ABROCITINIB
     Indication: Rash

REACTIONS (3)
  - Intentional product misuse [Unknown]
  - Emotional distress [Unknown]
  - Rash [Unknown]
